FAERS Safety Report 16636601 (Version 3)
Quarter: 2019Q3

REPORT INFORMATION
  Report Type: Spontaneous
  Country: BE (occurrence: BE)
  Receive Date: 20190726
  Receipt Date: 20190904
  Transmission Date: 20191004
  Serious: Yes (Other)
  Sender: FDA-Public Use
  Company Number: BE-PFIZER INC-2019308195

PATIENT
  Age: 39 Year
  Sex: Female
  Weight: 49.5 kg

DRUGS (3)
  1. CYTARABINE. [Suspect]
     Active Substance: CYTARABINE
     Indication: ACUTE MYELOID LEUKAEMIA
     Dosage: 304 MG, 1X/DAY (200 MG/M2)
     Route: 042
     Dates: start: 20190614, end: 20190620
  2. MYLOTARG [Suspect]
     Active Substance: GEMTUZUMAB OZOGAMICIN
     Indication: ACUTE MYELOID LEUKAEMIA
     Dosage: 4.56 MG (3 MG/M2), CYCLIC CYCLIC INDUCTION TREATMENT: ON DAYS 1,4 AND 7
     Route: 042
     Dates: start: 20190614, end: 20190617
  3. ZAVEDOS [Suspect]
     Active Substance: IDARUBICIN
     Indication: ACUTE MYELOID LEUKAEMIA
     Route: 042

REACTIONS (6)
  - Thrombocytopenia [Recovered/Resolved]
  - Hyperbilirubinaemia [Recovered/Resolved with Sequelae]
  - Venoocclusive disease [Recovered/Resolved]
  - Ascites [Recovered/Resolved]
  - Weight increased [Recovered/Resolved]
  - Abdominal pain [Recovered/Resolved]

NARRATIVE: CASE EVENT DATE: 20190701
